FAERS Safety Report 4582436-1 (Version None)
Quarter: 2005Q1

REPORT INFORMATION
  Report Type: 
  Country: None (occurrence: None)
  Receive Date: 20050215
  Receipt Date: 20050131
  Transmission Date: 20050727
  Serious: Yes (Hospitalization)
  Sender: FDA-Public Use
  Company Number: 200510821US

PATIENT
  Sex: Male
  Weight: 83.7 kg

DRUGS (4)
  1. TAXOTERE [Suspect]
     Indication: NON-SMALL CELL LUNG CANCER
     Route: 042
     Dates: start: 20040620, end: 20040902
  2. PREDNISONE [Concomitant]
     Indication: INCREASED APPETITE
     Route: 048
     Dates: start: 20040803
  3. BENTYL [Concomitant]
     Indication: MUSCLE SPASMS
     Route: 048
  4. ZANTAC [Concomitant]
     Indication: GASTROOESOPHAGEAL REFLUX DISEASE
     Dosage: DOSE: OVER THE COUNTER DOSE
     Route: 048

REACTIONS (15)
  - ABDOMINAL PAIN UPPER [None]
  - ASTHENIA [None]
  - BLOOD ALBUMIN DECREASED [None]
  - BLOOD CREATININE INCREASED [None]
  - DEHYDRATION [None]
  - FATIGUE [None]
  - HAEMATOCRIT DECREASED [None]
  - HAEMOGLOBIN DECREASED [None]
  - NAUSEA [None]
  - NEUTROPENIA [None]
  - PERFORMANCE STATUS DECREASED [None]
  - PYREXIA [None]
  - VOMITING [None]
  - WEIGHT DECREASED [None]
  - WHITE BLOOD CELL COUNT DECREASED [None]
